FAERS Safety Report 6596420-X (Version None)
Quarter: 2010Q1

REPORT INFORMATION
  Report Type: 
  Country: None (occurrence: None)
  Receive Date: 20100223
  Receipt Date: 20100219
  Transmission Date: 20100710
  Serious: Yes (Other)
  Sender: FDA-Public Use
  Company Number: CHPA2010US03460

PATIENT
  Age: 73 Year
  Sex: Male
  Weight: 74.83 kg

DRUGS (1)
  1. SLOW FE IRON TABLETS (NCH) [Suspect]
     Indication: ANAEMIA
     Dosage: 1 DF, QD
     Route: 048
     Dates: end: 20100201

REACTIONS (6)
  - CORONARY ARTERIAL STENT INSERTION [None]
  - CORONARY ARTERY BYPASS [None]
  - CORONARY ARTERY DISEASE [None]
  - PROSTATE CANCER [None]
  - SHOULDER OPERATION [None]
  - SILENT MYOCARDIAL INFARCTION [None]
